FAERS Safety Report 9364835 (Version 1)
Quarter: 2013Q2

REPORT INFORMATION
  Report Type: Spontaneous
  Country: US (occurrence: US)
  Receive Date: 20130624
  Receipt Date: 20130624
  Transmission Date: 20140414
  Serious: No
  Sender: FDA-Public Use
  Company Number: US-US-EMD SERONO, INC.-7006770

PATIENT
  Sex: Female

DRUGS (1)
  1. GONAL-F RFF PEN [Suspect]
     Indication: PREGNANCY
     Dates: start: 200908

REACTIONS (1)
  - Anovulatory cycle [Not Recovered/Not Resolved]
